FAERS Safety Report 7201900-X (Version None)
Quarter: 2010Q4

REPORT INFORMATION
  Report Type: 
  Country: None (occurrence: None)
  Receive Date: 20101229
  Receipt Date: 20101217
  Transmission Date: 20110411
  Serious: Yes (Hospitalization, Other)
  Sender: FDA-Public Use
  Company Number: JP-AMGEN-JPNCT2010009642

PATIENT

DRUGS (17)
  1. PANITUMUMAB [Suspect]
     Indication: COLORECTAL CANCER
     Dosage: 6 MG/KG, Q2WK
     Route: 041
     Dates: start: 20100825, end: 20101104
  2. OXALIPLATIN [Suspect]
     Indication: COLORECTAL CANCER
     Route: 041
     Dates: start: 20100825, end: 20101104
  3. FLUOROURACIL [Suspect]
     Indication: COLORECTAL CANCER
     Route: 040
     Dates: start: 20100825, end: 20101104
  4. FLUOROURACIL [Suspect]
     Route: 041
     Dates: start: 20100825, end: 20101104
  5. CALCIUM LEVOFOLINATE [Suspect]
     Indication: COLORECTAL CANCER
     Route: 041
     Dates: start: 20100825, end: 20101104
  6. RINDERON-VG OINTMENT [Concomitant]
     Route: 062
  7. ALOSENN [Concomitant]
     Route: 048
  8. PONTAL [Concomitant]
     Route: 048
  9. FERROUS CITRATE [Concomitant]
     Route: 048
  10. DIFFERIN [Concomitant]
     Route: 062
  11. LASIX [Concomitant]
     Route: 048
  12. LOXOPROFEN [Concomitant]
     Route: 048
  13. SELBEX [Concomitant]
     Route: 048
  14. BIOFERMIN [Concomitant]
     Route: 048
  15. ALBUMIN TANNATE [Concomitant]
     Route: 048
  16. CALONAL [Concomitant]
     Route: 048
  17. ADALAT CC [Concomitant]
     Route: 048

REACTIONS (6)
  - ANAEMIA [None]
  - BLOOD CREATININE INCREASED [None]
  - DERMATITIS ACNEIFORM [None]
  - DIARRHOEA [None]
  - GASTROINTESTINAL INFLAMMATION [None]
  - PARONYCHIA [None]
